FAERS Safety Report 7045129-7 (Version None)
Quarter: 2010Q4

REPORT INFORMATION
  Report Type: 
  Country: None (occurrence: None)
  Receive Date: 20101014
  Receipt Date: 20101004
  Transmission Date: 20110411
  Serious: Yes (Other)
  Sender: FDA-Public Use
  Company Number: US-ELI_LILLY_AND_COMPANY-US201010001168

PATIENT

DRUGS (3)
  1. GEMCITABINE HCL [Suspect]
     Indication: RENAL CELL CARCINOMA
     Dosage: 750 MG/M2, UNK
     Route: 042
  2. SORAFENIB [Concomitant]
     Indication: RENAL CELL CARCINOMA
     Dosage: 200 MG, 2/D
     Route: 048
  3. CAPECITABINE [Concomitant]
     Indication: RENAL CELL CARCINOMA
     Dosage: 622 MG/M2, 2/D
     Route: 048

REACTIONS (1)
  - PALMAR-PLANTAR ERYTHRODYSAESTHESIA SYNDROME [None]
